FAERS Safety Report 7480868-5 (Version None)
Quarter: 2011Q2

REPORT INFORMATION
  Report Type: 
  Country: None (occurrence: None)
  Receive Date: 20110506
  Receipt Date: 20110422
  Transmission Date: 20111010
  Serious: Yes (Hospitalization)
  Sender: FDA-Public Use
  Company Number: IPC201104-000690

PATIENT
  Age: 51 Year
  Sex: Male

DRUGS (8)
  1. METOPROLOL TARTRATE [Suspect]
     Dosage: 100 MG DAILY
  2. ROSUVASTATIN [Suspect]
     Dosage: 20 MG DAILY
  3. LACIDIPINE [Suspect]
     Dosage: 2 MG DAILY
  4. TENOFOVIR DISOPROXIL FUMARATE+EMTRICITABINE [Suspect]
     Indication: PROPHYLAXIS AGAINST HIV INFECTION
     Dosage: 245 MG/ 200 MG ONCE DAILY
  5. LOPINAVIR/RITONAVIR [Suspect]
     Indication: PROPHYLAXIS AGAINST HIV INFECTION
     Dosage: 400 MG/100 MG TWICE DAILY
  6. RAMIPRIL [Suspect]
     Dosage: 5 MG DAILY
  7. LEVOTHYROXINE SODIUM [Suspect]
     Dosage: 75 UG
  8. ASPIRIN [Suspect]
     Dosage: 325 MG DAILY

REACTIONS (5)
  - HYPOTENSION [None]
  - SYNCOPE [None]
  - BRADYCARDIA [None]
  - DRUG INTERACTION [None]
  - ATRIOVENTRICULAR BLOCK COMPLETE [None]
